FAERS Safety Report 8422049-4 (Version None)
Quarter: 2012Q2

REPORT INFORMATION
  Report Type: 
  Country: None (occurrence: None)
  Receive Date: 20120608
  Receipt Date: 20120606
  Transmission Date: 20120825
  Serious: Yes (Other)
  Sender: FDA-Public Use
  Company Number: CH-ROCHE-1071911

PATIENT
  Age: 75 Year
  Sex: Male
  Weight: 69 kg

DRUGS (1)
  1. ZELBORAF [Suspect]
     Indication: METASTATIC MALIGNANT MELANOMA
     Route: 048
     Dates: start: 20120405

REACTIONS (5)
  - LONG QT SYNDROME [None]
  - KERATOACANTHOMA [None]
  - EPIDERMOLYSIS [None]
  - SQUAMOUS CELL CARCINOMA [None]
  - SKIN PAPILLOMA [None]
